FAERS Safety Report 8152376-X (Version None)
Quarter: 2012Q1

REPORT INFORMATION
  Report Type: 
  Country: None (occurrence: None)
  Receive Date: 20120214
  Receipt Date: 20120203
  Transmission Date: 20120608
  Serious: Yes (Hospitalization)
  Sender: FDA-Public Use
  Company Number: DSA_55069_2012

PATIENT
  Sex: Female

DRUGS (4)
  1. AMIODARONE HYDROCHLORIDE [Suspect]
     Indication: ATRIAL FIBRILLATION
     Dosage: (1 G, ONE TIME DOSE; ADMINISTERED OVER 18 HOURS INTRAVENOUS BOLUS)
     Route: 040
     Dates: start: 20111213, end: 20111214
  2. FUROSEMIDE [Concomitant]
  3. DILTIAZEM [Suspect]
     Indication: ATRIAL FIBRILLATION
     Dosage: (30 MG, ONE TIME DOSE INTRAVENOUS BOLUS)
     Route: 040
     Dates: start: 20111214, end: 20111214
  4. ADENOSINE [Concomitant]

REACTIONS (3)
  - RENAL FAILURE ACUTE [None]
  - HEPATITIS TOXIC [None]
  - DIALYSIS [None]
